FAERS Safety Report 5723561-9 (Version None)
Quarter: 2008Q2

REPORT INFORMATION
  Report Type: 
  Country: None (occurrence: None)
  Receive Date: 20080430
  Receipt Date: 20080428
  Transmission Date: 20081010
  Serious: Yes (Hospitalization)
  Sender: FDA-Public Use
  Company Number: B0513623A

PATIENT
  Age: 87 Year
  Sex: Female
  Weight: 45 kg

DRUGS (10)
  1. ARIXTRA [Suspect]
     Indication: HIP SURGERY
     Dosage: 1.5MG PER DAY
     Route: 058
     Dates: start: 20080311, end: 20080318
  2. LOXONIN [Suspect]
     Indication: DRUG USE FOR UNKNOWN INDICATION
     Dosage: 60MG TWICE PER DAY
     Route: 048
     Dates: start: 20080306, end: 20080318
  3. PLETAL [Suspect]
     Indication: DRUG USE FOR UNKNOWN INDICATION
     Dosage: 50MG TWICE PER DAY
     Route: 048
  4. SIMVASTATIN [Concomitant]
     Dosage: 5MG PER DAY
     Route: 048
  5. GASTER D [Concomitant]
     Dosage: 20MG PER DAY
     Route: 048
  6. ONEALFA [Concomitant]
     Dosage: .5MG PER DAY
     Route: 048
  7. ACTOS [Concomitant]
     Route: 048
  8. MUCOSTA [Concomitant]
     Dosage: 200MG PER DAY
     Route: 048
     Dates: start: 20080306
  9. UNKNOWN [Concomitant]
     Dosage: 2G PER DAY
     Route: 042
     Dates: start: 20080310, end: 20080313
  10. UNASYN [Concomitant]
     Dosage: 3G PER DAY
     Route: 042
     Dates: start: 20080313, end: 20080316

REACTIONS (7)
  - ANAEMIA [None]
  - DIVERTICULUM INTESTINAL [None]
  - HAEMATOCHEZIA [None]
  - LOWER GASTROINTESTINAL HAEMORRHAGE [None]
  - MELAENA [None]
  - PLATELET COUNT INCREASED [None]
  - THROMBOSIS [None]
